FAERS Safety Report 17947941 (Version 2)
Quarter: 2020Q3

REPORT INFORMATION
  Report Type: Spontaneous
  Country: US (occurrence: US)
  Receive Date: 20200625
  Receipt Date: 20200710
  Transmission Date: 20201103
  Serious: Yes (Hospitalization, Other)
  Sender: FDA-Public Use
  Company Number: US-BAUSCH-BL-2020-017829

PATIENT
  Age: 74 Year
  Sex: Female

DRUGS (8)
  1. REVLIMID [Suspect]
     Active Substance: LENALIDOMIDE
     Indication: PLASMA CELL MYELOMA
     Dosage: DAY 1?21, EVERY 28 DAYS
     Route: 048
     Dates: start: 20160426, end: 20161003
  2. REVLIMID [Suspect]
     Active Substance: LENALIDOMIDE
     Dosage: RESUMED TREATMENT AFTER PJI SURGERY
     Route: 048
  3. DECADRON [Suspect]
     Active Substance: DEXAMETHASONE
     Indication: PLASMA CELL MYELOMA
     Route: 048
     Dates: start: 20160425, end: 20161003
  4. IXAZOMIB [Suspect]
     Active Substance: IXAZOMIB
     Indication: PLASMA CELL MYELOMA
     Route: 065
     Dates: start: 2016
  5. IXAZOMIB [Suspect]
     Active Substance: IXAZOMIB
     Dosage: RESUMED TREATMENT AFTER PJI SURGERY
     Route: 065
  6. VELCADE [Suspect]
     Active Substance: BORTEZOMIB
     Indication: PLASMA CELL MYELOMA
     Route: 058
     Dates: start: 20160627, end: 20161003
  7. DECADRON [Suspect]
     Active Substance: DEXAMETHASONE
     Dosage: RESUMED AFTER PJI TREATMENT
     Route: 048
  8. VELCADE [Suspect]
     Active Substance: BORTEZOMIB
     Dosage: RESUMED TREATMENT AFTER PJI SYRGERY
     Route: 058

REACTIONS (4)
  - Sepsis [Recovering/Resolving]
  - Pancytopenia [Recovering/Resolving]
  - Arthritis infective [Recovering/Resolving]
  - Pneumonia streptococcal [Recovering/Resolving]

NARRATIVE: CASE EVENT DATE: 2016
